FAERS Safety Report 12070322 (Version 2)
Quarter: 2016Q1

REPORT INFORMATION
  Report Type: Spontaneous
  Country: JP (occurrence: JP)
  Receive Date: 20160211
  Receipt Date: 20160225
  Transmission Date: 20160526
  Serious: Yes (Life-Threatening, Other)
  Sender: FDA-Public Use
  Company Number: JP-WATSON-2016-02525

PATIENT
  Age: 25 Year
  Sex: Female

DRUGS (3)
  1. FENTANYL (UNKNOWN) [Suspect]
     Active Substance: FENTANYL
     Indication: ANAESTHESIA
     Dosage: 100 ?G, UNKNOWN
     Route: 065
  2. LIDOCAINE (UNKNOWN) [Suspect]
     Active Substance: LIDOCAINE
     Indication: ANAESTHESIA
     Dosage: 100 MG, UNKNOWN
     Route: 065
  3. PROPOFOL (UNKNOWN) [Suspect]
     Active Substance: PROPOFOL
     Indication: ANAESTHESIA
     Dosage: 200 MG, UNKNOWN
     Route: 065

REACTIONS (2)
  - Cardiac arrest [Recovered/Resolved]
  - Bradycardia [Recovered/Resolved]
